FAERS Safety Report 4330199-7 (Version None)
Quarter: 2004Q1

REPORT INFORMATION
  Report Type: 
  Country: None (occurrence: None)
  Receive Date: 20040329
  Receipt Date: 20040315
  Transmission Date: 20041129
  Serious: Yes (Death)
  Sender: FDA-Public Use
  Company Number: 04P-114-0248188-00

PATIENT
  Age: 56 Year
  Sex: Male

DRUGS (6)
  1. HUMIRA [Suspect]
     Indication: RHEUMATOID ARTHRITIS
     Dosage: 40 MG, 1 IN 2 WK, SUBCUTANEOUS
     Route: 058
     Dates: start: 20031006, end: 20031217
  2. METHOTREXATE [Concomitant]
  3. FOLIC ACID [Concomitant]
  4. DEFLAZACORT [Concomitant]
  5. CALCIUM [Concomitant]
  6. VITAMIN B COMPLEX CAP [Concomitant]

REACTIONS (1)
  - MYOCARDIAL INFARCTION [None]
